FAERS Safety Report 10433760 (Version 1)
Quarter: 2014Q3

REPORT INFORMATION
  Report Type: Spontaneous
  Country: US (occurrence: None)
  Receive Date: 20140904
  Receipt Date: 20140904
  Transmission Date: 20150326
  Serious: Yes (Hospitalization)
  Sender: FDA-Public Use
  Company Number: None

PATIENT
  Age: 57 Year
  Sex: Male
  Weight: 161.5 kg

DRUGS (1)
  1. LENALIDOMIDE (LENALIDOMIDE) (CAPSULE) (LENALIDOMIDE) [Suspect]
     Active Substance: LENALIDOMIDE

REACTIONS (2)
  - Neutrophil count decreased [None]
  - Body temperature increased [None]

NARRATIVE: CASE EVENT DATE: 20140815
